FAERS Safety Report 9883736 (Version 2)
Quarter: 2014Q4

REPORT INFORMATION
  Report Type: Spontaneous
  Country: US (occurrence: US)
  Receive Date: 20140210
  Receipt Date: 20141021
  Transmission Date: 20150529
  Serious: Yes (Hospitalization, Other)
  Sender: FDA-Public Use
  Company Number: US-009507513-1402USA002138

PATIENT
  Sex: Female
  Weight: 74.83 kg

DRUGS (1)
  1. NUVARING [Suspect]
     Active Substance: ETHINYL ESTRADIOL\ETONOGESTREL
     Indication: PRODUCT USED FOR UNKNOWN INDICATION
     Dosage: PLACE 1 RING IN VAGINA FOR 3 WKS, REMOVE FOR 1 WK
     Route: 067
     Dates: start: 200906

REACTIONS (5)
  - Migraine [Unknown]
  - Mental disorder due to a general medical condition [Unknown]
  - Protein S deficiency [Unknown]
  - Hallucination [Unknown]
  - Cerebrovascular accident [Unknown]

NARRATIVE: CASE EVENT DATE: 2009
